FAERS Safety Report 10600776 (Version 1)
Quarter: 2014Q4

REPORT INFORMATION
  Report Type: Spontaneous
  Country: US (occurrence: None)
  Receive Date: 20141119
  Receipt Date: 20141119
  Transmission Date: 20150529
  Serious: No
  Sender: FDA-Public Use
  Company Number: 1000071172

PATIENT
  Age: 67 Year
  Sex: Female

DRUGS (2)
  1. TUDORZA PRESSAIR [Suspect]
     Active Substance: ACLIDINIUM BROMIDE
     Indication: CHRONIC OBSTRUCTIVE PULMONARY DISEASE
     Dosage: 800 MCG, RESPIRATORY (INHALATION)
     Route: 055
     Dates: start: 201409
  2. DREO (FLUTICASONE, VILANTEROL) (FLUTICASONE, VILANTEROL) [Concomitant]

REACTIONS (3)
  - Joint swelling [None]
  - Pollakiuria [None]
  - Peripheral swelling [None]

NARRATIVE: CASE EVENT DATE: 201409
